FAERS Safety Report 11314486 (Version 11)
Quarter: 2018Q1

REPORT INFORMATION
  Report Type: Report from Study
  Country: US (occurrence: US)
  Receive Date: 20150727
  Receipt Date: 20180315
  Transmission Date: 20180508
  Serious: Yes (Hospitalization, Other)
  Sender: FDA-Public Use
  Company Number: US-OTSUKA-2015_005983

PATIENT
  Age: 61 Year
  Sex: Female

DRUGS (5)
  1. ARIPIPRAZOLE. [Suspect]
     Active Substance: ARIPIPRAZOLE
     Dosage: 300 MG, QM
     Route: 030
     Dates: start: 20150714, end: 20150814
  2. ARIPIPRAZOLE. [Suspect]
     Active Substance: ARIPIPRAZOLE
     Dosage: UNK
     Route: 030
     Dates: start: 2015
  3. MARIJUANA [Suspect]
     Active Substance: CANNABIS SATIVA SUBSP. INDICA TOP
     Indication: PRODUCT USED FOR UNKNOWN INDICATION
     Dosage: UNK
     Route: 065
  4. ARIPIPRAZOLE. [Suspect]
     Active Substance: ARIPIPRAZOLE
     Indication: BIPOLAR DISORDER
     Dosage: UNK UNK, QM
     Route: 030
     Dates: start: 201505
  5. ABILIFY [Suspect]
     Active Substance: ARIPIPRAZOLE
     Indication: BIPOLAR DISORDER
     Dosage: UNK
     Route: 048
     Dates: start: 201505

REACTIONS (19)
  - Upper respiratory tract infection [Unknown]
  - Mania [Unknown]
  - Anger [Unknown]
  - Depression [Unknown]
  - Fear of animals [Unknown]
  - Stress [Unknown]
  - Paranoia [Unknown]
  - Anxiety [Unknown]
  - Injection site pain [Recovering/Resolving]
  - Drug ineffective [Unknown]
  - Laryngitis [Unknown]
  - Depressed mood [Unknown]
  - Hypersomnia [Unknown]
  - Bipolar disorder [Unknown]
  - Suicidal ideation [Unknown]
  - Thinking abnormal [Recovered/Resolved]
  - Injury [Unknown]
  - Decreased appetite [Unknown]
  - Drug ineffective for unapproved indication [Unknown]

NARRATIVE: CASE EVENT DATE: 2015
